FAERS Safety Report 8377046-4 (Version None)
Quarter: 2012Q2

REPORT INFORMATION
  Report Type: 
  Country: None (occurrence: None)
  Receive Date: 20120522
  Receipt Date: 20120516
  Transmission Date: 20120825
  Serious: Yes (Death, Other)
  Sender: FDA-Public Use
  Company Number: US-ROCHE-1067748

PATIENT
  Sex: Female
  Weight: 108.05 kg

DRUGS (6)
  1. XELODA [Suspect]
     Indication: PANCREATIC CARCINOMA
     Route: 048
     Dates: start: 20120215, end: 20120430
  2. IRINOTECAN HCL [Suspect]
     Indication: PANCREATIC CARCINOMA
     Route: 042
     Dates: start: 20120215, end: 20120417
  3. FRAGMIN [Concomitant]
     Route: 058
     Dates: start: 20110401, end: 20120506
  4. MORPHINE [Concomitant]
     Indication: PAIN
     Route: 048
     Dates: start: 20111201, end: 20120430
  5. DILAUDID [Concomitant]
     Indication: PAIN
     Dosage: 2-4 MG ORAL/IV
     Dates: start: 20120430, end: 20120508
  6. METFORMIN HCL [Concomitant]
     Indication: DIABETES MELLITUS
     Dates: start: 20100706, end: 20120506

REACTIONS (2)
  - NEOPLASM MALIGNANT [None]
  - HEPATIC FAILURE [None]
